FAERS Safety Report 10173585 (Version 1)
Quarter: 2014Q2

REPORT INFORMATION
  Report Type: Spontaneous
  Country: US (occurrence: None)
  Receive Date: 20140514
  Receipt Date: 20140514
  Transmission Date: 20141212
  Serious: Yes (Life-Threatening, Hospitalization, Disabling, Congenital Anomaly, Other)
  Sender: FDA-Public Use
  Company Number: None

PATIENT
  Age: 34 Year
  Sex: Female
  Weight: 81.65 kg

DRUGS (4)
  1. VICODIN [Suspect]
     Indication: ROAD TRAFFIC ACCIDENT
     Dosage: NORCO 1 EVERY 6 HOURS PRN, TAKEN BY MOUTH
     Route: 048
     Dates: start: 20140414, end: 20140501
  2. VICODIN [Suspect]
     Indication: INJURY
     Dosage: NORCO 1 EVERY 6 HOURS PRN, TAKEN BY MOUTH
     Route: 048
     Dates: start: 20140414, end: 20140501
  3. PERCOCET [Suspect]
     Indication: ROAD TRAFFIC ACCIDENT
     Dosage: PERCACIT/OXYCODONE 1 EVERY 6 HOURS PRN TAKEN BY MOUTH
     Route: 048
     Dates: start: 20140502, end: 20140509
  4. PERCOCET [Suspect]
     Indication: INJURY
     Dosage: PERCACIT/OXYCODONE 1 EVERY 6 HOURS PRN TAKEN BY MOUTH
     Route: 048
     Dates: start: 20140502, end: 20140509

REACTIONS (5)
  - Suicidal ideation [None]
  - Mania [None]
  - Angioedema [None]
  - Swelling [None]
  - Drug interaction [None]
